FAERS Safety Report 7068340-8 (Version None)
Quarter: 2010Q4

REPORT INFORMATION
  Report Type: 
  Country: None (occurrence: None)
  Receive Date: 20101028
  Receipt Date: 20101021
  Transmission Date: 20110411
  Serious: Yes (Disabling, Other)
  Sender: FDA-Public Use
  Company Number: A0888036A

PATIENT
  Age: 57 Year
  Sex: Female

DRUGS (7)
  1. ADVAIR DISKUS 100/50 [Suspect]
     Indication: ASTHMA
     Dosage: 1PUFF TWICE PER DAY
     Route: 055
     Dates: start: 20101001
  2. SINGULAIR [Concomitant]
  3. OMEPRAZOLE [Concomitant]
  4. METFORMIN [Concomitant]
  5. PRAVASTATIN [Concomitant]
  6. GLIMEPIRIDE [Concomitant]
  7. ALBUTEROL [Concomitant]

REACTIONS (1)
  - ASTHMA [None]
